FAERS Safety Report 6925778-4 (Version None)
Quarter: 2010Q3

REPORT INFORMATION
  Report Type: 
  Country: None (occurrence: None)
  Receive Date: 20100816
  Receipt Date: 20100809
  Transmission Date: 20110219
  Serious: Yes (Hospitalization)
  Sender: FDA-Public Use
  Company Number: B0666596A

PATIENT
  Sex: Female

DRUGS (4)
  1. PROPAFENONE HCL [Suspect]
     Indication: PRODUCT USED FOR UNKNOWN INDICATION
     Dosage: 750MG PER DAY
     Route: 048
     Dates: start: 20100301
  2. APROVEL [Suspect]
     Indication: HYPERTENSION
     Dosage: 1.5UNIT PER DAY
     Route: 065
     Dates: start: 20100301, end: 20100711
  3. PANTOPRAZOLE SODIUM [Concomitant]
  4. ACETYLSALICYLIC ACID SRT [Concomitant]

REACTIONS (7)
  - DYSSTASIA [None]
  - HYPERHIDROSIS [None]
  - HYPOTENSION [None]
  - NAUSEA [None]
  - PALLOR [None]
  - VERTIGO [None]
  - VISUAL IMPAIRMENT [None]
